FAERS Safety Report 19363190 (Version 2)
Quarter: 2021Q4

REPORT INFORMATION
  Report Type: Report from Study
  Country: KR (occurrence: KR)
  Receive Date: 20210603
  Receipt Date: 20211108
  Transmission Date: 20220303
  Serious: Yes (Other)
  Sender: FDA-Public Use
  Company Number: KR-KYOWAKIRIN-2021AKK009266

PATIENT
  Age: 67 Year
  Sex: Male

DRUGS (119)
  1. FILGRASTIM [Suspect]
     Active Substance: FILGRASTIM
     Indication: Product used for unknown indication
     Dosage: 300 UNK
     Route: 065
     Dates: start: 20110819, end: 20110820
  2. FILGRASTIM [Suspect]
     Active Substance: FILGRASTIM
     Dosage: 300 UNK
     Route: 065
     Dates: start: 20110822, end: 20110822
  3. DECITABINE [Concomitant]
     Active Substance: DECITABINE
     Indication: Product used for unknown indication
     Dosage: 20 UNK
     Dates: start: 20110317, end: 20110317
  4. DECITABINE [Concomitant]
     Active Substance: DECITABINE
     Dosage: 20 UNK
     Dates: start: 20110318, end: 20110318
  5. DECITABINE [Concomitant]
     Active Substance: DECITABINE
     Dosage: 20 UNK
     Dates: start: 20110319, end: 20110319
  6. DECITABINE [Concomitant]
     Active Substance: DECITABINE
     Dosage: 20 UNK
     Dates: start: 20110320, end: 20110320
  7. DECITABINE [Concomitant]
     Active Substance: DECITABINE
     Dosage: 20 UNK
     Dates: start: 20110321, end: 20110321
  8. DECITABINE [Concomitant]
     Active Substance: DECITABINE
     Dosage: 20 UNK
     Dates: start: 20110414, end: 20110414
  9. DECITABINE [Concomitant]
     Active Substance: DECITABINE
     Dosage: 20 UNK
     Dates: start: 20110415, end: 20110415
  10. DECITABINE [Concomitant]
     Active Substance: DECITABINE
     Dosage: 20 UNK
     Dates: start: 20110416, end: 20110416
  11. DECITABINE [Concomitant]
     Active Substance: DECITABINE
     Dosage: 20 UNK
     Dates: start: 20110417, end: 20110417
  12. DECITABINE [Concomitant]
     Active Substance: DECITABINE
     Dosage: 20 UNK
     Dates: start: 20110418, end: 20110418
  13. DECITABINE [Concomitant]
     Active Substance: DECITABINE
     Dosage: 20 UNK
     Dates: start: 20110512, end: 20110512
  14. DECITABINE [Concomitant]
     Active Substance: DECITABINE
     Dosage: 20 UNK
     Dates: start: 20110513, end: 20110513
  15. DECITABINE [Concomitant]
     Active Substance: DECITABINE
     Dosage: 20 UNK
     Dates: start: 20110514, end: 20110514
  16. DECITABINE [Concomitant]
     Active Substance: DECITABINE
     Dosage: 20 UNK
     Dates: start: 20110515, end: 20110515
  17. DECITABINE [Concomitant]
     Active Substance: DECITABINE
     Dosage: 20 UNK
     Dates: start: 20110516, end: 20110516
  18. DECITABINE [Concomitant]
     Active Substance: DECITABINE
     Dosage: 20 UNK
     Dates: start: 20110609, end: 20110609
  19. DECITABINE [Concomitant]
     Active Substance: DECITABINE
     Dosage: 20 UNK
     Dates: start: 20110610, end: 20110610
  20. DECITABINE [Concomitant]
     Active Substance: DECITABINE
     Dosage: 20 UNK
     Dates: start: 20110611, end: 20110611
  21. DECITABINE [Concomitant]
     Active Substance: DECITABINE
     Dosage: 20 UNK
     Dates: start: 20110612, end: 20110612
  22. DECITABINE [Concomitant]
     Active Substance: DECITABINE
     Dosage: 20 UNK
     Dates: start: 20110613, end: 20110613
  23. DECITABINE [Concomitant]
     Active Substance: DECITABINE
     Dosage: 20 UNK
     Dates: start: 20110728, end: 20110728
  24. DECITABINE [Concomitant]
     Active Substance: DECITABINE
     Dosage: 20 UNK
     Dates: start: 20110729, end: 20110729
  25. DECITABINE [Concomitant]
     Active Substance: DECITABINE
     Dosage: 20 UNK
     Dates: start: 20110730, end: 20110730
  26. DECITABINE [Concomitant]
     Active Substance: DECITABINE
     Dosage: 20 UNK
     Dates: start: 20110731, end: 20110731
  27. DECITABINE [Concomitant]
     Active Substance: DECITABINE
     Dosage: 20 UNK
     Dates: start: 20110801, end: 20110801
  28. DECITABINE [Concomitant]
     Active Substance: DECITABINE
     Dosage: 20 UNK
     Dates: start: 20110905, end: 20110905
  29. DECITABINE [Concomitant]
     Active Substance: DECITABINE
     Dosage: 20 UNK
     Dates: start: 20110906, end: 20110906
  30. DECITABINE [Concomitant]
     Active Substance: DECITABINE
     Dosage: 20 UNK
     Dates: start: 20110907, end: 20110907
  31. DECITABINE [Concomitant]
     Active Substance: DECITABINE
     Dosage: 20 UNK
     Dates: start: 20110908, end: 20110908
  32. DECITABINE [Concomitant]
     Active Substance: DECITABINE
     Dosage: 20 UNK
     Dates: start: 20110909, end: 20110909
  33. OTHER ANTIINFLAMMATORY AND ANTIRHEUMATIC AGENTS, NON-STEROIDS [Concomitant]
     Indication: Product used for unknown indication
     Dosage: 2 DF
     Dates: start: 20110422
  34. UNSPECIFIED INGREDIENT [Concomitant]
     Active Substance: UNSPECIFIED INGREDIENT
     Indication: Product used for unknown indication
     Dosage: 100 MG
     Dates: start: 20110511, end: 20110701
  35. ALMAGATE [Concomitant]
     Active Substance: ALMAGATE
     Indication: Product used for unknown indication
     Dosage: UNK
     Dates: start: 20110721
  36. CHLORPHENIRAMINE MALEATE [Concomitant]
     Active Substance: CHLORPHENIRAMINE MALEATE
     Indication: Product used for unknown indication
     Dosage: 4MG
     Dates: start: 20110324, end: 20110324
  37. CHLORPHENIRAMINE MALEATE [Concomitant]
     Active Substance: CHLORPHENIRAMINE MALEATE
     Dosage: 4MG
     Dates: start: 20110422, end: 20110422
  38. CHLORPHENIRAMINE MALEATE [Concomitant]
     Active Substance: CHLORPHENIRAMINE MALEATE
     Dosage: 4MG
     Dates: start: 20110601, end: 20110601
  39. CHLORPHENIRAMINE MALEATE [Concomitant]
     Active Substance: CHLORPHENIRAMINE MALEATE
     Dosage: 4MG
     Dates: start: 20110622, end: 20110622
  40. CHLORPHENIRAMINE MALEATE [Concomitant]
     Active Substance: CHLORPHENIRAMINE MALEATE
     Dosage: 4MG
     Dates: start: 20110623, end: 20110623
  41. CHLORPHENIRAMINE MALEATE [Concomitant]
     Active Substance: CHLORPHENIRAMINE MALEATE
     Dosage: 4MG
     Dates: start: 20110715, end: 20110715
  42. CHLORPHENIRAMINE MALEATE [Concomitant]
     Active Substance: CHLORPHENIRAMINE MALEATE
     Dosage: 4MG
     Dates: start: 20110721, end: 20110721
  43. CHLORPHENIRAMINE MALEATE [Concomitant]
     Active Substance: CHLORPHENIRAMINE MALEATE
     Dosage: 4MG
     Dates: start: 20110811, end: 20110811
  44. CHLORPHENIRAMINE MALEATE [Concomitant]
     Active Substance: CHLORPHENIRAMINE MALEATE
     Dosage: 4MG
     Dates: start: 20110829, end: 20110829
  45. CHLORPHENIRAMINE MALEATE [Concomitant]
     Active Substance: CHLORPHENIRAMINE MALEATE
     Dosage: 4MG
     Dates: start: 20110905, end: 20110905
  46. CHLORPHENIRAMINE MALEATE [Concomitant]
     Active Substance: CHLORPHENIRAMINE MALEATE
     Dosage: 4MG
     Dates: start: 20110914, end: 20110914
  47. CHLORPHENIRAMINE MALEATE [Concomitant]
     Active Substance: CHLORPHENIRAMINE MALEATE
     Dosage: 4MG
     Dates: start: 20110705, end: 20110705
  48. CHLORPHENIRAMINE MALEATE [Concomitant]
     Active Substance: CHLORPHENIRAMINE MALEATE
     Dosage: 4MG
     Dates: start: 20110728, end: 20110728
  49. CHLORPHENIRAMINE MALEATE [Concomitant]
     Active Substance: CHLORPHENIRAMINE MALEATE
     Dosage: UNK
     Dates: start: 20110804, end: 20110804
  50. CHLORPHENIRAMINE MALEATE [Concomitant]
     Active Substance: CHLORPHENIRAMINE MALEATE
     Dosage: UNK
     Dates: start: 20110818, end: 20110818
  51. CIPROFLOXACIN [Concomitant]
     Active Substance: CIPROFLOXACIN
     Indication: Product used for unknown indication
     Dosage: 500MG
     Dates: start: 20110317, end: 20110413
  52. CIPROFLOXACIN [Concomitant]
     Active Substance: CIPROFLOXACIN
     Dosage: 500MG
     Dates: start: 20110414, end: 20110511
  53. CIPROFLOXACIN [Concomitant]
     Active Substance: CIPROFLOXACIN
     Dosage: 500MG
     Dates: start: 20110512, end: 20110608
  54. CIPROFLOXACIN [Concomitant]
     Active Substance: CIPROFLOXACIN
     Dosage: 500MG
     Dates: start: 20110609, end: 20110727
  55. CIPROFLOXACIN [Concomitant]
     Active Substance: CIPROFLOXACIN
     Dosage: 500MG
     Dates: start: 20110728, end: 20110904
  56. CIPROFLOXACIN [Concomitant]
     Active Substance: CIPROFLOXACIN
     Dosage: 1000MG
     Dates: start: 20110905, end: 20110919
  57. CIPROFLOXACIN [Concomitant]
     Active Substance: CIPROFLOXACIN
     Dosage: 1000MG
     Dates: start: 20110928, end: 20111019
  58. DARBEPOETIN ALFA [Concomitant]
     Active Substance: DARBEPOETIN ALFA
     Indication: Product used for unknown indication
     Dosage: 120 UNK
     Dates: start: 20110512, end: 20110512
  59. DARBEPOETIN ALFA [Concomitant]
     Active Substance: DARBEPOETIN ALFA
     Dosage: 120 UNK
     Dates: start: 20110519, end: 20110519
  60. DARBEPOETIN ALFA [Concomitant]
     Active Substance: DARBEPOETIN ALFA
     Dosage: 120 UNK
     Dates: start: 20110525, end: 20110525
  61. DARBEPOETIN ALFA [Concomitant]
     Active Substance: DARBEPOETIN ALFA
     Dosage: 240 UNK
     Dates: start: 20110331, end: 20110331
  62. DARBEPOETIN ALFA [Concomitant]
     Active Substance: DARBEPOETIN ALFA
     Dosage: 240 UNK
     Dates: start: 20110407, end: 20110407
  63. DARBEPOETIN ALFA [Concomitant]
     Active Substance: DARBEPOETIN ALFA
     Dosage: 240 UNK
     Dates: start: 20110414, end: 20110414
  64. DARBEPOETIN ALFA [Concomitant]
     Active Substance: DARBEPOETIN ALFA
     Dosage: 240 UNK
     Dates: start: 20110601, end: 20110601
  65. DARBEPOETIN ALFA [Concomitant]
     Active Substance: DARBEPOETIN ALFA
     Dosage: 240 UNK
     Dates: start: 20110609, end: 20110609
  66. DARBEPOETIN ALFA [Concomitant]
     Active Substance: DARBEPOETIN ALFA
     Dosage: 240 UNK
     Dates: start: 20110615, end: 20110615
  67. DARBEPOETIN ALFA [Concomitant]
     Active Substance: DARBEPOETIN ALFA
     Dosage: 240 UNK
     Dates: start: 20110622, end: 20110622
  68. DARBEPOETIN ALFA [Concomitant]
     Active Substance: DARBEPOETIN ALFA
     Dosage: 240 UNK
     Dates: start: 20110704, end: 20110704
  69. DARBEPOETIN ALFA [Concomitant]
     Active Substance: DARBEPOETIN ALFA
     Dosage: 240 UNK
     Dates: start: 20110711, end: 20110711
  70. DARBEPOETIN ALFA [Concomitant]
     Active Substance: DARBEPOETIN ALFA
     Dosage: 240 UNK
     Dates: start: 20110714, end: 20110714
  71. DARBEPOETIN ALFA [Concomitant]
     Active Substance: DARBEPOETIN ALFA
     Dosage: 240 UNK
     Dates: start: 20110721, end: 20110721
  72. DARBEPOETIN ALFA [Concomitant]
     Active Substance: DARBEPOETIN ALFA
     Dosage: 240 UNK
     Dates: start: 20110728, end: 20110728
  73. DARBEPOETIN ALFA [Concomitant]
     Active Substance: DARBEPOETIN ALFA
     Dosage: 240 UNK
     Dates: start: 20110905, end: 20110905
  74. EPERISONE [Concomitant]
     Active Substance: EPERISONE
     Indication: Product used for unknown indication
     Dosage: 100MG
     Dates: start: 20110422
  75. FLUCONAZOLE [Concomitant]
     Active Substance: FLUCONAZOLE
     Indication: Product used for unknown indication
     Dosage: 100MG
     Dates: start: 20110601, end: 20110607
  76. FLUCONAZOLE [Concomitant]
     Active Substance: FLUCONAZOLE
     Dosage: 100MG
     Dates: start: 20110615, end: 20110721
  77. FLUCONAZOLE [Concomitant]
     Active Substance: FLUCONAZOLE
     Dosage: 100MG
     Dates: start: 20110829, end: 20110904
  78. FLUCONAZOLE [Concomitant]
     Active Substance: FLUCONAZOLE
     Dosage: 100MG
     Dates: start: 20110905, end: 20110919
  79. FLUCONAZOLE [Concomitant]
     Active Substance: FLUCONAZOLE
     Dosage: 100MG
     Dates: start: 20110928, end: 20111012
  80. GLIMEPIRIDE [Concomitant]
     Active Substance: GLIMEPIRIDE
     Indication: Product used for unknown indication
     Dosage: 1MG
  81. NITROGLYCERIN [Concomitant]
     Active Substance: NITROGLYCERIN
     Indication: Product used for unknown indication
     Dosage: 0.6MG
     Dates: start: 20110427, end: 20110427
  82. ISOSORBIDE DINITRATE [Concomitant]
     Active Substance: ISOSORBIDE DINITRATE
     Indication: Product used for unknown indication
     Dosage: 20MG
     Dates: start: 20110511, end: 20110929
  83. ISOSORBIDE DINITRATE [Concomitant]
     Active Substance: ISOSORBIDE DINITRATE
     Dosage: 40MG
     Dates: start: 20110930
  84. ITOPRIDE [Concomitant]
     Active Substance: ITOPRIDE
     Indication: Product used for unknown indication
     Dosage: 150 MG
     Dates: start: 20110418
  85. ITRACONAZOLE [Concomitant]
     Active Substance: ITRACONAZOLE
     Indication: Product used for unknown indication
     Dosage: 40UNK
     Dates: start: 20110317, end: 20110413
  86. ITRACONAZOLE [Concomitant]
     Active Substance: ITRACONAZOLE
     Dosage: 40UNK
     Dates: start: 20110414, end: 20110511
  87. ITRACONAZOLE [Concomitant]
     Active Substance: ITRACONAZOLE
     Dosage: 40UNK
     Dates: start: 20110512, end: 20110531
  88. ITRACONAZOLE [Concomitant]
     Active Substance: ITRACONAZOLE
     Dosage: 40UNK
     Dates: start: 20110609, end: 20110615
  89. ITRACONAZOLE [Concomitant]
     Active Substance: ITRACONAZOLE
     Dosage: 40UNK
     Dates: start: 20110721, end: 20110727
  90. ITRACONAZOLE [Concomitant]
     Active Substance: ITRACONAZOLE
     Dosage: 40UNK
     Dates: start: 20110728, end: 20110825
  91. ITRACONAZOLE [Concomitant]
     Active Substance: ITRACONAZOLE
     Dosage: 400MG
     Dates: start: 20110905, end: 20110912
  92. LOPERAMIDE [Concomitant]
     Active Substance: LOPERAMIDE
     Indication: Product used for unknown indication
     Dosage: 2MG
     Dates: start: 20110609, end: 20110613
  93. LORAZEPAM [Concomitant]
     Active Substance: LORAZEPAM
     Indication: Product used for unknown indication
     Dosage: 1MG
     Dates: start: 20110519, end: 20110525
  94. MAGNESIUM OXIDE [Concomitant]
     Active Substance: MAGNESIUM OXIDE
     Indication: Product used for unknown indication
     Dosage: 1500 MG
     Dates: start: 20110615, end: 20110717
  95. MAGNESIUM OXIDE [Concomitant]
     Active Substance: MAGNESIUM OXIDE
     Dosage: 1500 MG
     Dates: start: 20110721
  96. MELOXICAM [Concomitant]
     Active Substance: MELOXICAM
     Indication: Product used for unknown indication
     Dosage: 15MG
     Dates: start: 20110422
  97. METFORMIN [Concomitant]
     Active Substance: METFORMIN HYDROCHLORIDE
     Indication: Product used for unknown indication
     Dosage: 0.5 DF
  98. METFORMIN\SITAGLIPTIN [Concomitant]
     Active Substance: METFORMIN\SITAGLIPTIN
     Indication: Product used for unknown indication
     Dosage: 0.5 DF
     Dates: start: 20110511
  99. METOCLOPRAMIDE [Concomitant]
     Active Substance: METOCLOPRAMIDE
     Indication: Product used for unknown indication
     Dosage: 10MG
     Dates: start: 20110525, end: 20110601
  100. METOCLOPRAMIDE [Concomitant]
     Active Substance: METOCLOPRAMIDE
     Dosage: 1500MG
     Dates: start: 20110615, end: 20110706
  101. METOPROLOL [Concomitant]
     Active Substance: METOPROLOL
     Indication: Product used for unknown indication
     Dosage: 100MG
     Dates: start: 20110427, end: 20110427
  102. ONDANSETRON [Concomitant]
     Active Substance: ONDANSETRON
     Indication: Product used for unknown indication
     Dosage: UNK
     Dates: start: 20110601, end: 20110615
  103. MEPERIDINE [Concomitant]
     Active Substance: MEPERIDINE
     Indication: Product used for unknown indication
     Dosage: 50MG
     Dates: start: 20110722, end: 20110722
  104. PIPERACILLIN [Concomitant]
     Active Substance: PIPERACILLIN
     Indication: Product used for unknown indication
     Dosage: 16 UNK
     Dates: start: 20110819, end: 20110822
  105. RANITIDINE [Concomitant]
     Active Substance: RANITIDINE
     Indication: Product used for unknown indication
     Dosage: 300MG
     Dates: start: 20110422
  106. SACCHAROMYCES CEREVISIAE [Concomitant]
     Active Substance: SACCHAROMYCES CEREVISIAE
     Indication: Product used for unknown indication
     Dosage: 500MG
     Dates: start: 20110418, end: 20110422
  107. SILYMARIN 100 [Concomitant]
     Indication: Product used for unknown indication
     Dosage: 280MG
     Dates: start: 20111006, end: 20111020
  108. SITAGLIPTIN [Concomitant]
     Active Substance: SITAGLIPTIN
     Indication: Product used for unknown indication
     Dosage: 25MG
  109. TAMSULOSIN [Concomitant]
     Active Substance: TAMSULOSIN
     Indication: Product used for unknown indication
     Dosage: 0.2MG
     Dates: start: 20110325, end: 20110421
  110. TOBRAMYCIN [Concomitant]
     Active Substance: TOBRAMYCIN
     Indication: Product used for unknown indication
     Dosage: 360 MG
     Dates: start: 20110819, end: 20110822
  111. TRANEXAMIC ACID [Concomitant]
     Active Substance: TRANEXAMIC ACID
     Indication: Product used for unknown indication
     Dosage: 750 MG
     Dates: start: 20110421, end: 20110427
  112. TRANEXAMIC ACID [Concomitant]
     Active Substance: TRANEXAMIC ACID
     Dosage: 750 MG
     Dates: start: 20110519, end: 20110607
  113. TRANEXAMIC ACID [Concomitant]
     Active Substance: TRANEXAMIC ACID
     Dosage: 750 MG
     Dates: start: 20110622, end: 20110628
  114. TRANEXAMIC ACID [Concomitant]
     Active Substance: TRANEXAMIC ACID
     Dosage: 750 MG
     Dates: start: 20110704, end: 20110717
  115. TRANEXAMIC ACID [Concomitant]
     Active Substance: TRANEXAMIC ACID
     Dosage: 750 MG
     Dates: start: 20110728, end: 20110803
  116. TRIMETAZIDINE [Concomitant]
     Active Substance: TRIMETAZIDINE
     Indication: Product used for unknown indication
     Dosage: 35MG
     Dates: start: 20110930
  117. TRIMETAZIDINE [Concomitant]
     Active Substance: TRIMETAZIDINE
     Dosage: 70MG
     Dates: start: 20110511, end: 20110929
  118. URSODIOL [Concomitant]
     Active Substance: URSODIOL
     Indication: Product used for unknown indication
     Dosage: 600 MG
     Dates: start: 20111006, end: 20111020
  119. ZOLPIDEM [Concomitant]
     Active Substance: ZOLPIDEM TARTRATE
     Indication: Product used for unknown indication
     Dosage: 6.25MG
     Dates: start: 20110714, end: 20110720

REACTIONS (23)
  - Hyperbilirubinaemia [Recovered/Resolved]
  - Thrombocytopenia [Recovered/Resolved]
  - Tinnitus [Unknown]
  - Pollakiuria [Unknown]
  - Pruritus [Recovered/Resolved]
  - Dysphagia [Recovered/Resolved]
  - Abdominal distension [Recovered/Resolved]
  - Dacryostenosis acquired [Unknown]
  - Gingival bleeding [Recovered/Resolved]
  - Generalised oedema [Recovered/Resolved]
  - Neck pain [Not Recovered/Not Resolved]
  - Aspartate aminotransferase increased [Recovered/Resolved]
  - Dysuria [Recovered/Resolved]
  - Dysuria [Recovered/Resolved]
  - Dizziness [Unknown]
  - Constipation [Unknown]
  - Dyspnoea [Recovered/Resolved]
  - Oropharyngeal pain [Recovered/Resolved]
  - Anaemia [Recovered/Resolved]
  - Nausea [Recovered/Resolved]
  - Vomiting [Recovered/Resolved]
  - Chest pain [Recovered/Resolved]
  - Arthralgia [Not Recovered/Not Resolved]

NARRATIVE: CASE EVENT DATE: 20110928
